FAERS Safety Report 9319421 (Version 2)
Quarter: 2014Q2

REPORT INFORMATION
  Report Type: Spontaneous
  Country: US (occurrence: US)
  Receive Date: 20130530
  Receipt Date: 20140530
  Transmission Date: 20141212
  Serious: No
  Sender: FDA-Public Use
  Company Number: US-GLAXOSMITHKLINE-A0977216A

PATIENT
  Age: 40 Year
  Sex: Female

DRUGS (2)
  1. FLOLAN [Suspect]
     Indication: COR PULMONALE CHRONIC
     Dosage: 1.5MG CONTINUOUS
     Route: 042
     Dates: start: 20120326
  2. TYVASO [Concomitant]
     Dates: end: 2013

REACTIONS (2)
  - Eye swelling [Unknown]
  - Swelling face [Unknown]
